FAERS Safety Report 12672240 (Version 2)
Quarter: 2016Q3

REPORT INFORMATION
  Report Type: Spontaneous
  Country: US (occurrence: US)
  Receive Date: 20160822
  Receipt Date: 20160923
  Transmission Date: 20161109
  Serious: No
  Sender: FDA-Public Use
  Company Number: US-PFIZER INC-2016394334

PATIENT
  Age: 73 Year
  Sex: Female

DRUGS (2)
  1. AFINITOR [Concomitant]
     Active Substance: EVEROLIMUS
     Dosage: 10 MG, UNK
     Dates: start: 201601
  2. AROMASIN [Suspect]
     Active Substance: EXEMESTANE
     Indication: NEOPLASM MALIGNANT
     Dosage: 25 MG, 1X/DAY
     Dates: start: 201601

REACTIONS (3)
  - Musculoskeletal stiffness [Unknown]
  - Disease progression [Unknown]
  - Neoplasm malignant [Unknown]

NARRATIVE: CASE EVENT DATE: 201601
